FAERS Safety Report 4354483-6 (Version None)
Quarter: 2004Q2

REPORT INFORMATION
  Report Type: 
  Country: None (occurrence: None)
  Receive Date: 20040503
  Receipt Date: 20040416
  Transmission Date: 20050107
  Serious: Yes (Other)
  Sender: FDA-Public Use
  Company Number: S04-PRT-01934-01

PATIENT
  Sex: Female

DRUGS (3)
  1. CIPRALEX (ESCITALOPRAM) [Suspect]
     Indication: DEPRESSION
     Dosage: 5 MG BID PO
     Route: 048
     Dates: start: 20040401, end: 20040401
  2. CIPRALEX (ESCITALOPRAM) [Suspect]
     Indication: SUICIDAL IDEATION
     Dosage: 5 MG BID PO
     Route: 048
     Dates: start: 20040401, end: 20040401
  3. WARFARIN SODIUM [Suspect]
     Dosage: UNITS
     Dates: end: 20040401

REACTIONS (1)
  - COAGULOPATHY [None]
